FAERS Safety Report 17390116 (Version 1)
Quarter: 2020Q1

REPORT INFORMATION
  Report Type: Spontaneous
  Country: JP (occurrence: JP)
  Receive Date: 20200205
  Receipt Date: 20200205
  Transmission Date: 20200409
  Serious: Yes (Other)
  Sender: FDA-Public Use
  Company Number: JP-GLAXOSMITHKLINE-JP2019JPN142404

PATIENT

DRUGS (1)
  1. ZOVIRAX [Suspect]
     Active Substance: ACYCLOVIR
     Indication: HERPES ZOSTER
     Dosage: UNK
     Route: 048

REACTIONS (5)
  - Drug-induced liver injury [Unknown]
  - SUNCT syndrome [Recovered/Resolved]
  - Trigeminal neuralgia [Unknown]
  - Conjunctival hyperaemia [Unknown]
  - Lacrimation increased [Unknown]
